FAERS Safety Report 25259878 (Version 1)
Quarter: 2025Q2

REPORT INFORMATION
  Report Type: Spontaneous
  Country: US (occurrence: US)
  Receive Date: 20250501
  Receipt Date: 20250501
  Transmission Date: 20250717
  Serious: Yes (Hospitalization, Other)
  Sender: ADVANZ PHARMA
  Company Number: US-ADVANZ PHARMA-202504003136

PATIENT

DRUGS (26)
  1. PHENOXYBENZAMINE [Suspect]
     Active Substance: PHENOXYBENZAMINE
     Indication: Paraganglion neoplasm
  2. PHENOXYBENZAMINE [Suspect]
     Active Substance: PHENOXYBENZAMINE
     Indication: Phaeochromocytoma
  3. METOPROLOL TARTRATE [Concomitant]
     Active Substance: METOPROLOL TARTRATE
     Indication: Ventricular extrasystoles
  4. METOPROLOL TARTRATE [Concomitant]
     Active Substance: METOPROLOL TARTRATE
     Indication: Ventricular tachycardia
  5. METOPROLOL TARTRATE [Concomitant]
     Active Substance: METOPROLOL TARTRATE
  6. METOPROLOL TARTRATE [Concomitant]
     Active Substance: METOPROLOL TARTRATE
  7. METOPROLOL TARTRATE [Concomitant]
     Active Substance: METOPROLOL TARTRATE
  8. ENALAPRIL [Concomitant]
     Active Substance: ENALAPRIL
  9. ADENOSINE [Concomitant]
     Active Substance: ADENOSINE
     Route: 042
  10. ADENOSINE [Concomitant]
     Active Substance: ADENOSINE
     Route: 042
  11. ADENOSINE [Concomitant]
     Active Substance: ADENOSINE
     Route: 042
  12. NALBUPHINE HYDROCHLORIDE [Concomitant]
     Active Substance: NALBUPHINE HYDROCHLORIDE
     Indication: Abdominal pain
  13. ATIVAN [Concomitant]
     Active Substance: LORAZEPAM
     Indication: Nausea
  14. FLUMAZENIL [Concomitant]
     Active Substance: FLUMAZENIL
     Indication: Mental status changes
  15. NOREPINEPHRINE [Concomitant]
     Active Substance: NOREPINEPHRINE
  16. PROCAINAMIDE HYDROCHLORIDE [Concomitant]
     Active Substance: PROCAINAMIDE HYDROCHLORIDE
  17. PROCAINAMIDE HYDROCHLORIDE [Concomitant]
     Active Substance: PROCAINAMIDE HYDROCHLORIDE
  18. PROCAINAMIDE HYDROCHLORIDE [Concomitant]
     Active Substance: PROCAINAMIDE HYDROCHLORIDE
  19. AMIODARONE [Concomitant]
     Active Substance: AMIODARONE
     Indication: Arrhythmia
  20. AMIODARONE [Concomitant]
     Active Substance: AMIODARONE
  21. AMIODARONE [Concomitant]
     Active Substance: AMIODARONE
  22. AMIODARONE [Concomitant]
     Active Substance: AMIODARONE
  23. DOXAZOSIN [Concomitant]
     Active Substance: DOXAZOSIN MESYLATE
  24. SILDENAFIL [Concomitant]
     Active Substance: SILDENAFIL
  25. SPIRONOLACTONE [Concomitant]
     Active Substance: SPIRONOLACTONE
  26. LOVENOX [Concomitant]
     Active Substance: ENOXAPARIN SODIUM

REACTIONS (1)
  - Adrenocortical insufficiency acute [Recovered/Resolved]
